FAERS Safety Report 6395168-4 (Version None)
Quarter: 2009Q4

REPORT INFORMATION
  Report Type: 
  Country: None (occurrence: None)
  Receive Date: 20091009
  Receipt Date: 20090928
  Transmission Date: 20100525
  Serious: Yes (Other)
  Sender: FDA-Public Use
  Company Number: PHHY2009GR41316

PATIENT
  Age: 87 Year
  Sex: Female

DRUGS (4)
  1. EXELON [Suspect]
     Indication: MEMORY IMPAIRMENT
     Dosage: UNK
  2. EXELON [Suspect]
     Indication: MENTAL DISORDER
     Dosage: UNK
     Dates: start: 20090927, end: 20090927
  3. MADOPAR [Concomitant]
  4. VITAMINS [Concomitant]

REACTIONS (3)
  - ANXIETY [None]
  - DELIRIUM [None]
  - LOSS OF CONSCIOUSNESS [None]
